FAERS Safety Report 9539101 (Version 2)
Quarter: 2014Q2

REPORT INFORMATION
  Report Type: Spontaneous
  Country: US (occurrence: US)
  Receive Date: 20130920
  Receipt Date: 20140624
  Transmission Date: 20141212
  Serious: Yes (Hospitalization)
  Sender: FDA-Public Use
  Company Number: US-BAYER-2013-113276

PATIENT
  Age: 40 Year
  Sex: Female

DRUGS (9)
  1. YAZ [Suspect]
  2. GIANVI [Suspect]
  3. AMITRIPTYLINE [Concomitant]
     Dosage: 20 MG, AT NIGHT
     Route: 048
     Dates: start: 20121210
  4. AMITRIPTYLINE [Concomitant]
     Dosage: 25 MG, UNK
     Dates: start: 20121210
  5. AMITIZA [Concomitant]
  6. LEVETIRACETAM [Concomitant]
     Dosage: 500 MG, UNK
     Dates: start: 20121215
  7. ELAVIL [Concomitant]
  8. FLUCONAZOLE [Concomitant]
     Dosage: 150 MG, UNK
     Dates: start: 20121215
  9. SMZ-TMP DS [Concomitant]
     Dosage: 800-160 MG
     Dates: start: 20121215

REACTIONS (2)
  - Deep vein thrombosis [None]
  - Pulmonary embolism [None]
